FAERS Safety Report 20322287 (Version 1)
Quarter: 2022Q1

REPORT INFORMATION
  Report Type: Spontaneous
  Country: US (occurrence: None)
  Receive Date: 20220110
  Receipt Date: 20220110
  Transmission Date: 20220423
  Serious: Yes (Hospitalization)
  Sender: FDA-Public Use
  Company Number: None

PATIENT
  Age: 52 Year
  Sex: Female
  Weight: 102 kg

DRUGS (16)
  1. OLUMIANT [Suspect]
     Active Substance: BARICITINIB
     Indication: Rheumatoid arthritis
     Dosage: FREQUENCY : DAILY;?
     Route: 048
     Dates: start: 20211220, end: 20220110
  2. Trazodone 200mg hs [Concomitant]
  3. zoloft 100mg daily [Concomitant]
  4. plaquenil 200mg bid [Concomitant]
  5. TYLENOL [Concomitant]
     Active Substance: ACETAMINOPHEN
  6. albuterol prn [Concomitant]
  7. voltaren topical prn [Concomitant]
  8. FISH OIL [Concomitant]
     Active Substance: FISH OIL
  9. norco prn [Concomitant]
  10. MVI daily [Concomitant]
  11. tizanidine 4mg hs [Concomitant]
  12. topamax 25mg bedtime [Concomitant]
  13. clindamycin topical [Concomitant]
  14. ketorolac prn [Concomitant]
  15. calcium otc [Concomitant]
  16. vitamin D otc [Concomitant]

REACTIONS (1)
  - Dyspnoea [None]

NARRATIVE: CASE EVENT DATE: 20220103
